FAERS Safety Report 10249200 (Version 2)
Quarter: 2014Q4

REPORT INFORMATION
  Report Type: Spontaneous
  Country: US (occurrence: US)
  Receive Date: 20140620
  Receipt Date: 20141016
  Transmission Date: 20150528
  Serious: Yes (Life-Threatening, Hospitalization)
  Sender: FDA-Public Use
  Company Number: US-BAYER-2014-092348

PATIENT
  Age: 26 Year
  Sex: Female
  Weight: 69.84 kg

DRUGS (3)
  1. MIRENA [Suspect]
     Active Substance: LEVONORGESTREL
     Indication: CONTRACEPTION
     Dosage: 20 MCG/24HR, CONT
     Route: 015
     Dates: start: 20100122, end: 20110419
  2. CYMBALTA [Concomitant]
     Active Substance: DULOXETINE HYDROCHLORIDE
     Dosage: 20 MG, UNK
     Route: 048
  3. DEPAKOTE [Concomitant]
     Active Substance: DIVALPROEX SODIUM
     Dosage: 500 MG, UNK
     Route: 048

REACTIONS (10)
  - Device dislocation [None]
  - Emotional distress [None]
  - Anhedonia [None]
  - Injury [None]
  - General physical health deterioration [None]
  - Infection [None]
  - Anxiety [None]
  - Device issue [None]
  - Abdominal pain [None]
  - Medical device discomfort [None]

NARRATIVE: CASE EVENT DATE: 201104
